FAERS Safety Report 11739621 (Version 2)
Quarter: 2015Q4

REPORT INFORMATION
  Report Type: Spontaneous
  Country: US (occurrence: US)
  Receive Date: 20151110
  Receipt Date: 20151120
  Transmission Date: 20160304
  Serious: No
  Sender: FDA-Public Use
  Company Number: US-ELI_LILLY_AND_COMPANY-US201207003339

PATIENT
  Age: 81 Year
  Sex: Female

DRUGS (1)
  1. FORTEO [Suspect]
     Active Substance: TERIPARATIDE
     Dosage: 20 UG, QD
     Route: 058
     Dates: start: 20120508, end: 201208

REACTIONS (6)
  - Abdominal distension [Unknown]
  - Injection site bruising [Unknown]
  - Infection [Unknown]
  - Muscle spasms [Unknown]
  - Malaise [Unknown]
  - Contusion [Unknown]

NARRATIVE: CASE EVENT DATE: 201206
